FAERS Safety Report 7338790-0 (Version None)
Quarter: 2011Q1

REPORT INFORMATION
  Report Type: 
  Country: None (occurrence: None)
  Receive Date: 20110210
  Receipt Date: 20101209
  Transmission Date: 20110831
  Serious: No
  Sender: FDA-Public Use
  Company Number: 1000017685

PATIENT
  Age: 36 Year
  Sex: Female

DRUGS (9)
  1. SAVELLA [Suspect]
     Indication: FIBROMYALGIA
     Dosage: SEE IMAGE
     Route: 048
     Dates: start: 20100101, end: 20100101
  2. SAVELLA [Suspect]
     Indication: FIBROMYALGIA
     Dosage: SEE IMAGE
     Route: 048
     Dates: start: 20100101
  3. SAVELLA [Suspect]
     Indication: FIBROMYALGIA
     Dosage: SEE IMAGE
     Route: 048
     Dates: start: 20100101, end: 20100101
  4. SAVELLA [Suspect]
     Indication: FIBROMYALGIA
     Dosage: SEE IMAGE
     Route: 048
     Dates: start: 20100101, end: 20100101
  5. NUVARING (NUVARING) (NUVARING) [Concomitant]
  6. LOTREL (AMLODIPINE, BENAZEPRIL) (AMLODIPINE, BENAZEPRIL) [Concomitant]
  7. ADDERALL XR (OBETROL) (OBETROL) [Concomitant]
  8. SYNTHROID (LEVOTHYROXINE SODIUM) (LEVOTHYROXINE SODIUM) [Concomitant]
  9. AMBIEN (ZLOPIDEM TARTRATE) (ZOLPIDEM TARTRATE) [Concomitant]

REACTIONS (2)
  - GALACTORRHOEA [None]
  - LIBIDO INCREASED [None]
